FAERS Safety Report 19802199 (Version 1)
Quarter: 2021Q3

REPORT INFORMATION
  Report Type: Spontaneous
  Country: US (occurrence: US)
  Receive Date: 20210908
  Receipt Date: 20210908
  Transmission Date: 20211014
  Serious: Yes (Other)
  Sender: FDA-Public Use
  Company Number: US-CADILA HEALTHCARE LIMITED-US-ZYDUS-069437

PATIENT

DRUGS (19)
  1. DOCUSATE [Concomitant]
     Active Substance: DOCUSATE
     Indication: PRODUCT USED FOR UNKNOWN INDICATION
     Dosage: UNK
  2. POLYETHYLENE GLYCOL [Concomitant]
     Active Substance: POLYETHYLENE GLYCOLS
     Indication: PRODUCT USED FOR UNKNOWN INDICATION
     Dosage: UNK
  3. POTASSIUM CHLORIDE. [Concomitant]
     Active Substance: POTASSIUM CHLORIDE
     Indication: PRODUCT USED FOR UNKNOWN INDICATION
     Dosage: UNK
  4. CYPROHEPTADINE HYDROCHLORIDE. [Interacting]
     Active Substance: CYPROHEPTADINE HYDROCHLORIDE
     Indication: GASTRIC DISORDER
     Dosage: 2 MILLIGRAM, BID
     Route: 065
  5. BUMETANIDE. [Concomitant]
     Active Substance: BUMETANIDE
     Indication: PRODUCT USED FOR UNKNOWN INDICATION
     Dosage: UNK
  6. ENALAPRIL [Concomitant]
     Active Substance: ENALAPRIL
     Indication: PRODUCT USED FOR UNKNOWN INDICATION
     Dosage: UNK
  7. LANSOPRAZOLE. [Concomitant]
     Active Substance: LANSOPRAZOLE
     Indication: PRODUCT USED FOR UNKNOWN INDICATION
     Dosage: UNK
  8. FAMOTIDINE. [Concomitant]
     Active Substance: FAMOTIDINE
     Indication: PRODUCT USED FOR UNKNOWN INDICATION
     Dosage: UNK
  9. CYPROHEPTADINE HYDROCHLORIDE. [Interacting]
     Active Substance: CYPROHEPTADINE HYDROCHLORIDE
     Indication: INCREASED APPETITE
     Dosage: 2 MILLIGRAM, QD (AT BED TIME)
     Route: 065
  10. CYPROHEPTADINE HYDROCHLORIDE. [Interacting]
     Active Substance: CYPROHEPTADINE HYDROCHLORIDE
     Dosage: 6 DOSAGE FORM, QD
     Route: 065
  11. CYPROHEPTADINE HYDROCHLORIDE. [Interacting]
     Active Substance: CYPROHEPTADINE HYDROCHLORIDE
     Dosage: UNK, BID
     Route: 065
  12. CLONIDINE. [Interacting]
     Active Substance: CLONIDINE
     Dosage: UNK
     Route: 065
  13. CHLOROTHIAZIDE. [Concomitant]
     Active Substance: CHLOROTHIAZIDE
     Indication: PRODUCT USED FOR UNKNOWN INDICATION
     Dosage: UNK
  14. CLOPIDOGREL [Concomitant]
     Active Substance: CLOPIDOGREL BISULFATE
     Indication: PRODUCT USED FOR UNKNOWN INDICATION
     Dosage: UNK
  15. SPIRONOLACTONE. [Concomitant]
     Active Substance: SPIRONOLACTONE
     Indication: PRODUCT USED FOR UNKNOWN INDICATION
     Dosage: UNK
  16. ENOXAPARIN [Concomitant]
     Active Substance: ENOXAPARIN
     Indication: PRODUCT USED FOR UNKNOWN INDICATION
     Dosage: UNK
  17. SODIUM CHLORIDE. [Concomitant]
     Active Substance: SODIUM CHLORIDE
     Indication: PRODUCT USED FOR UNKNOWN INDICATION
     Dosage: UNK
  18. CYPROHEPTADINE HYDROCHLORIDE. [Interacting]
     Active Substance: CYPROHEPTADINE HYDROCHLORIDE
     Dosage: 3 DOSAGE FORM, BID
     Route: 065
  19. CLONIDINE. [Suspect]
     Active Substance: CLONIDINE
     Indication: PRODUCT USED FOR UNKNOWN INDICATION
     Dosage: 50 MICROGRAM
     Route: 062

REACTIONS (3)
  - Drug interaction [Unknown]
  - Atrioventricular block [Recovered/Resolved]
  - Product use in unapproved indication [Unknown]
